FAERS Safety Report 5959115-9 (Version None)
Quarter: 2008Q4

REPORT INFORMATION
  Report Type: 
  Country: None (occurrence: None)
  Receive Date: 20081120
  Receipt Date: 20080102
  Transmission Date: 20090506
  Serious: Yes (Life-Threatening, Disabling, Other)
  Sender: FDA-Public Use
  Company Number: A0701002A

PATIENT
  Age: 41 Year
  Sex: Female

DRUGS (2)
  1. WELLBUTRIN SR [Suspect]
     Indication: DEPRESSION
     Dosage: 250MG TWICE PER DAY
     Route: 048
     Dates: start: 20070101, end: 20070101
  2. L-DOPA [Concomitant]

REACTIONS (1)
  - GRAND MAL CONVULSION [None]
